FAERS Safety Report 6386172-0 (Version None)
Quarter: 2009Q3

REPORT INFORMATION
  Report Type: 
  Country: None (occurrence: None)
  Receive Date: 20090929
  Receipt Date: 20090113
  Transmission Date: 20100115
  Serious: Yes (Other)
  Sender: FDA-Public Use
  Company Number: 14391668

PATIENT
  Age: 39 Year
  Sex: Male
  Weight: 78 kg

DRUGS (9)
  1. DEFINITY [Suspect]
     Indication: STRESS ECHOCARDIOGRAM
     Dosage: 2 ML, INTRAVENOUS
     Route: 042
     Dates: start: 20081027
  2. PEPCID [Concomitant]
  3. CLARINEX [Concomitant]
  4. RHINOCORT [Concomitant]
  5. IBUPROFEN [Concomitant]
  6. VITAMIN B COMPLEX CAP [Concomitant]
  7. ASPIRIN [Concomitant]
  8. LISINOPRIL [Concomitant]
  9. ACIPHEX [Concomitant]

REACTIONS (2)
  - HYPOTENSION [None]
  - RASH [None]
